FAERS Safety Report 6755793-5 (Version None)
Quarter: 2010Q2

REPORT INFORMATION
  Report Type: 
  Country: None (occurrence: None)
  Receive Date: 20100604
  Receipt Date: 20100527
  Transmission Date: 20101027
  Serious: Yes (Other)
  Sender: FDA-Public Use
  Company Number: US-ELI_LILLY_AND_COMPANY-US201005007804

PATIENT
  Sex: Female

DRUGS (4)
  1. HUMALOG [Suspect]
     Indication: TYPE 1 DIABETES MELLITUS
     Dosage: UNK, AS NEEDED
  2. GLUCAGON [Suspect]
     Indication: DIABETIC COMA
     Dosage: UNK, AS NEEDED
  3. NOVOLOG [Concomitant]
     Route: 058
  4. LANTUS [Concomitant]

REACTIONS (2)
  - DEHYDRATION [None]
  - DIABETIC COMA [None]
